FAERS Safety Report 8328871-7 (Version None)
Quarter: 2012Q2

REPORT INFORMATION
  Report Type: 
  Country: None (occurrence: None)
  Receive Date: 20120502
  Receipt Date: 20120420
  Transmission Date: 20120825
  Serious: Yes (Hospitalization, Other)
  Sender: FDA-Public Use
  Company Number: GB-SANOFI-AVENTIS-2012SA027685

PATIENT
  Age: 55 Year
  Sex: Female
  Weight: 88 kg

DRUGS (2)
  1. ENOXAPARIN SODIUM [Suspect]
     Route: 065
     Dates: start: 20111206
  2. IPILIMUMAB [Suspect]
     Route: 042
     Dates: start: 20120119, end: 20120215

REACTIONS (4)
  - NEOPLASM MALIGNANT [None]
  - DEEP VEIN THROMBOSIS [None]
  - CONTUSION [None]
  - HAEMOGLOBIN DECREASED [None]
